FAERS Safety Report 10566579 (Version 2)
Quarter: 2014Q4

REPORT INFORMATION
  Report Type: Spontaneous
  Country: CH (occurrence: CH)
  Receive Date: 20141105
  Receipt Date: 20141105
  Transmission Date: 20150529
  Serious: Yes (Life-Threatening, Hospitalization)
  Sender: FDA-Public Use
  Company Number: CH-PFIZER INC-2014268681

PATIENT
  Age: 62 Year
  Sex: Male
  Weight: 79 kg

DRUGS (13)
  1. MAGNESIUM SAN PELLEGRINO [Concomitant]
     Dosage: 1 SACHET, 1X/DAY
  2. MOVICOL [Concomitant]
     Active Substance: POLYETHYLENE GLYCOL 3350\POTASSIUM CHLORIDE\SODIUM BICARBONATE\SODIUM CHLORIDE
     Dosage: 1 DF, 1X/DAY
     Route: 048
  3. MORPHINE SULFATE/NALTREXONE HYDROCHLORIDE [Concomitant]
     Active Substance: MORPHINE SULFATE\NALTREXONE HYDROCHLORIDE
     Dosage: 10 MG, 2X/DAY
     Route: 048
  4. LAXOBERON [Concomitant]
     Active Substance: SODIUM PICOSULFATE
     Dosage: 10 DROPS, 1X/DAY
  5. PANTOZOL [Concomitant]
     Active Substance: PANTOPRAZOLE SODIUM
     Dosage: 40 MG, 1X/DAY
     Route: 048
  6. BENERVA [Concomitant]
     Active Substance: THIAMINE
     Dosage: 300 MG, 1X/DAY
     Route: 048
  7. BECOZYM [Concomitant]
     Active Substance: VITAMINS
     Dosage: 1 DF, 3X/DAY
     Route: 048
  8. SUTENT [Suspect]
     Active Substance: SUNITINIB MALATE
     Indication: METASTATIC RENAL CELL CARCINOMA
     Dosage: 50 MG, 1X/DAY, CYCLIC (4 WEEKS ON AND 2 WEEKS OFF)
     Route: 048
     Dates: start: 20140827, end: 20140902
  9. TOREM [Concomitant]
     Active Substance: TORSEMIDE
     Dosage: 10 MG, 1X/DAY
     Route: 048
  10. KONAKION [Concomitant]
     Active Substance: PHYTONADIONE
     Dosage: 10 MG, 3X/WEEK
     Route: 048
  11. KCL [Concomitant]
     Active Substance: POTASSIUM CHLORIDE
     Dosage: 10 MMOL, DRAG?E, 3X/DAY
  12. NOVALGIN [Concomitant]
     Active Substance: METAMIZOLE SODIUM
     Dosage: MAX. 20 DROPS, 4X/DAY, IN RESERVE
  13. VI-DE 3 [Concomitant]
     Dosage: DROPS, GIVEN ONCE
     Route: 048
     Dates: start: 20140829, end: 20140829

REACTIONS (1)
  - Anal abscess [Recovering/Resolving]

NARRATIVE: CASE EVENT DATE: 20140902
